FAERS Safety Report 4271795-5 (Version None)
Quarter: 2004Q1

REPORT INFORMATION
  Report Type: 
  Country: None (occurrence: None)
  Receive Date: 20040115
  Receipt Date: 20040102
  Transmission Date: 20041129
  Serious: Yes (Hospitalization)
  Sender: FDA-Public Use
  Company Number: FR-GLAXOSMITHKLINE-B0318786A

PATIENT
  Age: 78 Year
  Sex: Male
  Weight: 76 kg

DRUGS (6)
  1. LAMICTAL [Suspect]
     Dosage: 100MG FOUR TIMES PER DAY
     Route: 048
     Dates: start: 20030912, end: 20031103
  2. KARDEGIC [Suspect]
     Dosage: 75MG PER DAY
     Route: 048
     Dates: start: 20030619, end: 20031113
  3. OSTRAM [Suspect]
     Route: 048
     Dates: start: 20031107, end: 20031112
  4. MODOPAR [Suspect]
     Dosage: 125MG THREE TIMES PER DAY
     Route: 048
     Dates: start: 20031013
  5. LECTIL [Suspect]
     Dosage: 8MG THREE TIMES PER DAY
     Route: 048
     Dates: start: 20030930, end: 20031112
  6. ANTIBIOTICS (UNSPECIFIED) [Concomitant]
     Route: 065

REACTIONS (8)
  - CANDIDIASIS [None]
  - CULTURE STOOL POSITIVE [None]
  - DIARRHOEA [None]
  - ECCHYMOSIS [None]
  - HAEMOGLOBIN DECREASED [None]
  - MELAENA [None]
  - MOUTH HAEMORRHAGE [None]
  - THROMBOCYTOPENIA [None]
